FAERS Safety Report 7767980-8 (Version None)
Quarter: 2011Q3

REPORT INFORMATION
  Report Type: 
  Country: None (occurrence: None)
  Receive Date: 20110922
  Receipt Date: 20110113
  Transmission Date: 20111222
  Serious: Yes (Other)
  Sender: FDA-Public Use
  Company Number: US-ASTRAZENECA-2006UW20468

PATIENT
  Age: 14250 Day
  Sex: Female
  Weight: 68.9 kg

DRUGS (16)
  1. RISPERDAL [Suspect]
     Indication: SCHIZOPHRENIA
     Route: 065
     Dates: start: 20070506, end: 20090101
  2. TOPAMAX [Concomitant]
     Dates: start: 20030827
  3. ZYPREXA [Suspect]
     Indication: SCHIZOPHRENIA
     Dosage: 10 MG - 30 MG
     Route: 065
     Dates: start: 19990101, end: 20080101
  4. GEODON [Concomitant]
  5. ZYPREXA [Suspect]
     Indication: DEPRESSION
     Dosage: 10 MG - 30 MG
     Route: 065
     Dates: start: 19990101, end: 20080101
  6. ZYPREXA [Suspect]
     Indication: BIPOLAR DISORDER
     Dosage: 10 MG - 30 MG
     Route: 065
     Dates: start: 19990101, end: 20080101
  7. RISPERDAL [Suspect]
     Indication: BIPOLAR DISORDER
     Route: 065
     Dates: start: 20070506, end: 20090101
  8. HALDOL [Concomitant]
     Indication: AGITATION
     Dosage: 5 MG, Q 2 HOURS P.R.N
     Route: 048
     Dates: start: 20021202
  9. ATIVAN [Concomitant]
     Indication: AGITATION
     Dosage: 1-2 MG, Q 2H, P.R.N
     Route: 048
     Dates: start: 20021202
  10. SEROQUEL [Suspect]
     Indication: SCHIZOPHRENIA
     Route: 048
     Dates: start: 20001001, end: 20030401
  11. LEXAPRO [Concomitant]
     Route: 048
     Dates: start: 20030616
  12. SEROQUEL [Suspect]
     Indication: BIPOLAR DISORDER
     Route: 048
     Dates: start: 20001001, end: 20030401
  13. SEROQUEL [Suspect]
     Indication: DEPRESSION
     Route: 048
     Dates: start: 20001001, end: 20030401
  14. RISPERDAL [Suspect]
     Indication: DEPRESSION
     Route: 065
     Dates: start: 20070506, end: 20090101
  15. ABILIFY [Concomitant]
     Dates: start: 20030616
  16. DEPAKOTE [Concomitant]
     Dosage: 500 MG 2 TABLETS AT NIGHT
     Route: 048

REACTIONS (3)
  - DIABETIC COMA [None]
  - TYPE 1 DIABETES MELLITUS [None]
  - TYPE 2 DIABETES MELLITUS [None]
